FAERS Safety Report 10507488 (Version 1)
Quarter: 2014Q3

REPORT INFORMATION
  Report Type: Spontaneous
  Country: US (occurrence: None)
  Receive Date: 20140915
  Receipt Date: 20140915
  Transmission Date: 20150326
  Serious: Yes (Other)
  Sender: FDA-Public Use
  Company Number: 2014-US-005688

PATIENT
  Age: 44 Year
  Sex: Female

DRUGS (10)
  1. XYREM [Suspect]
     Active Substance: SODIUM OXYBATE
     Indication: NARCOLEPSY
     Route: 048
     Dates: start: 201404
  2. MUCINEX ( GUAIFENESIN) [Concomitant]
  3. ANTIHYPERTENSIVES [Concomitant]
     Active Substance: UNSPECIFIED INGREDIENT
  4. PROVIGIL ( MODAFINIL) [Concomitant]
  5. VITAMIN D ( COLECALCIFEROL) [Concomitant]
  6. SPIRIVA ( TIOTROPIUM BROMIDE) [Concomitant]
  7. NEURONTIN ( GABAPENTIN) [Concomitant]
  8. SINGULAIR [Concomitant]
     Active Substance: MONTELUKAST SODIUM
  9. CYMBALTA ( DULOXETINE HYDROCHLORIDE) [Concomitant]
  10. ALBUTEROL ( SALBUTAMOL SULFATE) [Concomitant]

REACTIONS (3)
  - Local swelling [None]
  - Weight increased [None]
  - Blood pressure increased [None]

NARRATIVE: CASE EVENT DATE: 201405
